FAERS Safety Report 5682545-X (Version None)
Quarter: 2008Q1

REPORT INFORMATION
  Report Type: 
  Country: None (occurrence: None)
  Receive Date: 20080327
  Receipt Date: 20071203
  Transmission Date: 20080703
  Serious: Yes (Other)
  Sender: FDA-Public Use
  Company Number: US-BRISTOL-MYERS SQUIBB COMPANY-14002406

PATIENT
  Age: 74 Year
  Sex: Female

DRUGS (1)
  1. ORENCIA [Suspect]
     Dosage: 3 VIALS/750MG
     Route: 042
     Dates: start: 20071130

REACTIONS (2)
  - DIZZINESS [None]
  - PHARYNGOLARYNGEAL PAIN [None]
